FAERS Safety Report 15492765 (Version 2)
Quarter: 2018Q4

REPORT INFORMATION
  Report Type: Spontaneous
  Country: JP (occurrence: JP)
  Receive Date: 20181012
  Receipt Date: 20181218
  Transmission Date: 20190205
  Serious: Yes (Other)
  Sender: FDA-Public Use
  Company Number: JP-PFIZER INC-2018396185

PATIENT
  Age: 64 Year
  Sex: Male
  Weight: 152.9 kg

DRUGS (12)
  1. SULFASALAZINE. [Suspect]
     Active Substance: SULFASALAZINE
     Indication: RHEUMATOID ARTHRITIS
     Dosage: UNK
     Dates: start: 20180725, end: 20180726
  2. SEIBULE [Concomitant]
     Active Substance: MIGLITOL
     Dosage: UNK
  3. LIPITOR [Concomitant]
     Active Substance: ATORVASTATIN CALCIUM
     Dosage: UNK
  4. FOLIAMIN [Concomitant]
     Active Substance: FOLIC ACID
     Dosage: UNK
  5. NOVORAPID [Concomitant]
     Active Substance: INSULIN ASPART
     Dosage: UNK
  6. AVAPRO [Suspect]
     Active Substance: IRBESARTAN
     Dosage: UNK
     Dates: end: 20180726
  7. GLACTIV [Concomitant]
     Active Substance: SITAGLIPTIN
     Dosage: UNK
     Dates: end: 20180727
  8. GASLON [Concomitant]
     Active Substance: IRSOGLADINE MALEATE
     Dosage: UNK
  9. PREDONINE [PREDNISOLONE ACETATE] [Concomitant]
     Dosage: UNK
  10. EDIROL [Suspect]
     Active Substance: ELDECALCITOL
     Dosage: UNK
     Dates: end: 20180726
  11. CELECOX [Suspect]
     Active Substance: CELECOXIB
     Dosage: UNK
     Dates: end: 20180726
  12. RHYTHMY [Concomitant]
     Active Substance: RILMAZAFONE HYDROCHLORIDE
     Dosage: UNK

REACTIONS (3)
  - Renal disorder [Recovering/Resolving]
  - Hypercalcaemia [Recovering/Resolving]
  - Glomerular filtration rate decreased [Recovering/Resolving]

NARRATIVE: CASE EVENT DATE: 20180726
